FAERS Safety Report 8827846 (Version 1)
Quarter: 2012Q4

REPORT INFORMATION
  Report Type: 
  Country: US (occurrence: US)
  Receive Date: 20121005
  Receipt Date: 20121005
  Transmission Date: 20130627
  Serious: No
  Sender: FDA-Public Use
  Company Number: US-VERTEX PHARMACEUTICAL INC.-2012-021706

PATIENT
  Age: 58 Year
  Sex: Female
  Weight: 71 kg

DRUGS (3)
  1. INCIVEK [Suspect]
     Indication: HEPATITIS C
     Dosage: 750 mg, tid
     Route: 048
     Dates: start: 20120914
  2. PEGASYS [Suspect]
     Indication: HEPATITIS C
     Dosage: 5 DF, qd
     Dates: start: 20120914
  3. RIBAVIRIN [Suspect]
     Indication: HEPATITIS C
     Dosage: 120 ?g, UNK
     Route: 058
     Dates: start: 20120914

REACTIONS (1)
  - Inappropriate schedule of drug administration [Recovered/Resolved]
